FAERS Safety Report 6558644-7 (Version None)
Quarter: 2010Q1

REPORT INFORMATION
  Report Type: 
  Country: None (occurrence: None)
  Receive Date: 20100128
  Receipt Date: 20100128
  Transmission Date: 20100710
  Serious: Yes (Hospitalization)
  Sender: FDA-Public Use
  Company Number: None

PATIENT
  Age: 85 Year
  Sex: Male

DRUGS (1)
  1. PHENYTOIN [Suspect]
     Indication: HAEMORRHAGE INTRACRANIAL
     Dosage: 100 MG TID PO
     Route: 048
     Dates: start: 20100111, end: 20100116

REACTIONS (1)
  - RASH [None]
